FAERS Safety Report 8062095-6 (Version None)
Quarter: 2012Q1

REPORT INFORMATION
  Report Type: 
  Country: None (occurrence: None)
  Receive Date: 20120120
  Receipt Date: 20120120
  Transmission Date: 20120608
  Serious: Yes (Hospitalization)
  Sender: FDA-Public Use
  Company Number: None

PATIENT
  Age: 48 Year
  Sex: Male
  Weight: 127.7 kg

DRUGS (1)
  1. CARBAMAZEPINE [Suspect]
     Indication: MANIA
     Dosage: 200 MG BID PO
     Route: 048
     Dates: start: 20120113, end: 20120114

REACTIONS (2)
  - TACHYPHRENIA [None]
  - RASH [None]
